FAERS Safety Report 5522301-6 (Version None)
Quarter: 2007Q4

REPORT INFORMATION
  Report Type: 
  Country: None (occurrence: None)
  Receive Date: 20071120
  Receipt Date: 20071112
  Transmission Date: 20080405
  Serious: Yes (Death)
  Sender: FDA-Public Use
  Company Number: US-JNJFOC-20071104803

PATIENT
  Sex: Female
  Weight: 77.11 kg

DRUGS (4)
  1. TOPAMAX [Suspect]
     Indication: BORDERLINE PERSONALITY DISORDER
     Route: 048
  2. LAMICTAL [Concomitant]
     Indication: BORDERLINE PERSONALITY DISORDER
     Route: 048
  3. EFFEXOR [Concomitant]
     Indication: BORDERLINE PERSONALITY DISORDER
     Route: 048
  4. ABILIFY [Concomitant]
     Indication: BORDERLINE PERSONALITY DISORDER
     Route: 048

REACTIONS (2)
  - COMPLETED SUICIDE [None]
  - OFF LABEL USE [None]
